FAERS Safety Report 7662619-4 (Version None)
Quarter: 2011Q3

REPORT INFORMATION
  Report Type: 
  Country: None (occurrence: None)
  Receive Date: 20110805
  Receipt Date: 20100808
  Transmission Date: 20111222
  Serious: No
  Sender: FDA-Public Use
  Company Number: US-ABBOTT-10P-163-0662304-00

PATIENT
  Sex: Female

DRUGS (1)
  1. NIASPAN [Suspect]
     Indication: PRODUCT USED FOR UNKNOWN INDICATION
     Dosage: IS TAKING IT IN THE EVENING
     Dates: start: 20080101

REACTIONS (8)
  - FEELING HOT [None]
  - SPEECH DISORDER [None]
  - SENSATION OF HEAVINESS [None]
  - FLUSHING [None]
  - GAIT DISTURBANCE [None]
  - SLEEP DISORDER [None]
  - PARAESTHESIA [None]
  - INCOHERENT [None]
